FAERS Safety Report 7129562-0 (Version None)
Quarter: 2010Q4

REPORT INFORMATION
  Report Type: 
  Country: None (occurrence: None)
  Receive Date: 20101130
  Receipt Date: 20101117
  Transmission Date: 20110411
  Serious: Yes (Other)
  Sender: FDA-Public Use
  Company Number: US-ELI_LILLY_AND_COMPANY-US201011005333

PATIENT
  Age: 63 Year
  Sex: Female

DRUGS (2)
  1. FORTEO [Suspect]
     Indication: OSTEOPOROSIS
     Dosage: 1 D/F, UNK
  2. FORTEO [Suspect]
     Dosage: UNK, UNK

REACTIONS (3)
  - MUSCLE SPASMS [None]
  - NAUSEA [None]
  - SURGERY [None]
